FAERS Safety Report 5490515-X (Version None)
Quarter: 2007Q4

REPORT INFORMATION
  Report Type: 
  Country: None (occurrence: None)
  Receive Date: 20071018
  Receipt Date: 20071018
  Transmission Date: 20080405
  Serious: Yes (Hospitalization, Disabling)
  Sender: FDA-Public Use
  Company Number: None

PATIENT
  Sex: Male
  Weight: 27.2 kg

DRUGS (1)
  1. RHOGAM [Suspect]
     Indication: IDIOPATHIC THROMBOCYTOPENIC PURPURA
     Dosage: 2000 MCG  X1   IM
     Route: 030
     Dates: start: 20070803, end: 20070803

REACTIONS (7)
  - ANAPHYLACTIC REACTION [None]
  - CHOKING [None]
  - COLD SWEAT [None]
  - COUGH [None]
  - DYSPNOEA [None]
  - PALLOR [None]
  - RETCHING [None]
